FAERS Safety Report 11326469 (Version 1)
Quarter: 2015Q3

REPORT INFORMATION
  Report Type: Spontaneous
  Country: US (occurrence: US)
  Receive Date: 20150731
  Receipt Date: 20150731
  Transmission Date: 20151125
  Serious: Yes (Hospitalization, Other)
  Sender: FDA-Public Use
  Company Number: US-ROXANE LABORATORIES, INC.-2015-RO-01229RO

PATIENT
  Age: 45 Year
  Sex: Female

DRUGS (3)
  1. LITHIUM CARBONATE. [Suspect]
     Active Substance: LITHIUM CARBONATE
     Indication: BIPOLAR DISORDER
     Route: 065
  2. ALPRAZOLAM. [Concomitant]
     Active Substance: ALPRAZOLAM
     Route: 065
  3. HYDROCODONE [Concomitant]
     Active Substance: HYDROCODONE
     Route: 065

REACTIONS (4)
  - Generalised tonic-clonic seizure [Recovered/Resolved]
  - Toxicity to various agents [Recovered/Resolved]
  - Acute kidney injury [Recovered/Resolved]
  - Electrocardiogram QT prolonged [Recovered/Resolved]
